FAERS Safety Report 4816197-5 (Version None)
Quarter: 2005Q4

REPORT INFORMATION
  Report Type: 
  Country: None (occurrence: None)
  Receive Date: 20051027
  Receipt Date: 20051019
  Transmission Date: 20060501
  Serious: Yes (Other)
  Sender: FDA-Public Use
  Company Number: CHNY2005FR01787

PATIENT
  Age: 53 Year
  Sex: Female
  Weight: 64 kg

DRUGS (6)
  1. SCOPODERM TTS (NCH) (HYOSCINE HYDROBROMIDE) TRANS-THERAPEUTIC-SYSTEM [Suspect]
     Indication: PROPHYLAXIS AGAINST MOTION SICKNESS
     Dosage: SEE IMAGE
     Dates: start: 20050820, end: 20050827
  2. SCOPODERM TTS (NCH) (HYOSCINE HYDROBROMIDE) TRANS-THERAPEUTIC-SYSTEM [Suspect]
     Indication: PROPHYLAXIS AGAINST MOTION SICKNESS
     Dosage: SEE IMAGE
     Dates: start: 20031101
  3. LEVOTHYROXINE SODIUM [Concomitant]
  4. CALCIUM (CALCIUM) [Concomitant]
  5. UN-ALFA (ALFACALCIDOL) [Concomitant]
  6. PROMETRIUM [Concomitant]

REACTIONS (11)
  - CALCIUM DEFICIENCY [None]
  - DIARRHOEA [None]
  - DRY MOUTH [None]
  - GASTROENTERITIS [None]
  - GASTROINTESTINAL DISORDER [None]
  - NAUSEA [None]
  - POLYDIPSIA [None]
  - SOMNOLENCE [None]
  - TETANY [None]
  - VOMITING [None]
  - WEIGHT DECREASED [None]
